FAERS Safety Report 7995176-3 (Version None)
Quarter: 2011Q4

REPORT INFORMATION
  Report Type: 
  Country: None (occurrence: None)
  Receive Date: 20111220
  Receipt Date: 20111209
  Transmission Date: 20120403
  Serious: Yes (Hospitalization)
  Sender: FDA-Public Use
  Company Number: FR-GLAXOSMITHKLINE-B0769835A

PATIENT
  Sex: Male
  Weight: 49 kg

DRUGS (8)
  1. TAMSULOSIN HCL [Concomitant]
     Indication: HYPERTROPHY
     Dosage: .4MG AT NIGHT
     Route: 048
  2. PROSCAR [Concomitant]
     Indication: BENIGN PROSTATIC HYPERPLASIA
     Route: 048
  3. NEOCODION [Concomitant]
     Indication: COUGH
     Route: 048
  4. ACETAMINOPHEN [Concomitant]
     Indication: PAIN
     Route: 048
  5. BECLOMETHASONE DIPROPIONATE [Concomitant]
     Indication: COUGH
     Route: 055
  6. POLYETHYLENE GLYCOL [Concomitant]
     Indication: CONSTIPATION
     Route: 048
  7. HELICIDINE [Concomitant]
     Indication: COUGH
     Route: 048
  8. PAZOPANIB [Suspect]
     Indication: DERMATOFIBROSARCOMA
     Dosage: 800MG PER DAY
     Route: 048
     Dates: start: 20110930

REACTIONS (2)
  - PULMONARY OEDEMA [None]
  - ATRIAL FLUTTER [None]
